FAERS Safety Report 17590339 (Version 1)
Quarter: 2020Q1

REPORT INFORMATION
  Report Type: Spontaneous
  Country: TN (occurrence: TN)
  Receive Date: 20200327
  Receipt Date: 20200327
  Transmission Date: 20200409
  Serious: Yes (Death, Hospitalization)
  Sender: FDA-Public Use
  Company Number: TN-MYLANLABS-2020M1032865

PATIENT
  Age: 37 Year
  Sex: Female

DRUGS (9)
  1. NOREPINEPHRINE. [Suspect]
     Active Substance: NOREPINEPHRINE
     Indication: SEPTIC SHOCK
     Dosage: TO A MAXIMUM OF 2 MICROG/KG/MIN
     Route: 065
  2. AMIKACIN. [Suspect]
     Active Substance: AMIKACIN
     Indication: BETA HAEMOLYTIC STREPTOCOCCAL INFECTION
  3. TEICOPLANIN [Suspect]
     Active Substance: TEICOPLANIN
     Indication: PERITONITIS BACTERIAL
     Route: 065
  4. NOREPINEPHRINE. [Suspect]
     Active Substance: NOREPINEPHRINE
     Dosage: 2 MICROGRAM/KILOGRAM, QMINUTE
     Route: 065
  5. IMIPENEM [Suspect]
     Active Substance: IMIPENEM
     Indication: BETA HAEMOLYTIC STREPTOCOCCAL INFECTION
  6. AMIKACIN. [Suspect]
     Active Substance: AMIKACIN
     Indication: PERITONITIS BACTERIAL
     Route: 065
  7. IMIPENEM [Suspect]
     Active Substance: IMIPENEM
     Indication: PERITONITIS BACTERIAL
     Route: 065
  8. TEICOPLANIN [Suspect]
     Active Substance: TEICOPLANIN
     Indication: BETA HAEMOLYTIC STREPTOCOCCAL INFECTION
  9. HEPARIN [Concomitant]
     Active Substance: HEPARIN SODIUM
     Indication: INTESTINAL ISCHAEMIA
     Dosage: 50 MILLIGRAM
     Route: 065

REACTIONS (1)
  - Drug ineffective [Fatal]
